FAERS Safety Report 6007359-2 (Version None)
Quarter: 2008Q4

REPORT INFORMATION
  Report Type: 
  Country: None (occurrence: None)
  Receive Date: 20081217
  Receipt Date: 20080317
  Transmission Date: 20090506
  Serious: No
  Sender: FDA-Public Use
  Company Number: US-ASTRAZENECA-2008UW05399

PATIENT
  Age: 81 Year
  Sex: Female
  Weight: 72.6 kg

DRUGS (3)
  1. CRESTOR [Suspect]
     Indication: BLOOD CHOLESTEROL
     Route: 048
  2. MOBIC [Concomitant]
  3. ASPIRIN [Concomitant]

REACTIONS (3)
  - CHROMATURIA [None]
  - MUSCULAR WEAKNESS [None]
  - MYALGIA [None]
